FAERS Safety Report 7420853-2 (Version None)
Quarter: 2011Q2

REPORT INFORMATION
  Report Type: 
  Country: None (occurrence: None)
  Receive Date: 20110418
  Receipt Date: 20110413
  Transmission Date: 20111010
  Serious: Yes (Hospitalization)
  Sender: FDA-Public Use
  Company Number: PHHY2011US30797

PATIENT
  Age: 56 Year
  Sex: Male
  Weight: 98 kg

DRUGS (16)
  1. NOVOLOG [Concomitant]
     Indication: TYPE 2 DIABETES MELLITUS
     Dosage: 100 U/ML, PRN
     Route: 048
     Dates: start: 20030315
  2. LIDODERM [Concomitant]
     Dosage: 5 %, PRN
     Dates: start: 20100216
  3. RAMIPRIL [Concomitant]
     Indication: HYPERTENSION
     Dosage: 10 MG, DAILY
     Route: 048
     Dates: start: 20090219
  4. LEXAPRO [Concomitant]
     Indication: ANXIETY
     Dosage: 10 MG, DAILY
     Route: 048
     Dates: start: 20090115
  5. BUTORPHANOL [Concomitant]
     Indication: PAIN IN EXTREMITY
     Dosage: 10 MG/ML, PRN
     Route: 048
     Dates: start: 20091015
  6. LORAZEPAM [Concomitant]
     Indication: ANXIETY
     Dosage: 3 MG, DAILY
     Route: 048
     Dates: start: 20080201
  7. BACLOFEN [Concomitant]
     Dosage: 90 MG, DAILY
     Route: 048
     Dates: start: 20090615
  8. LANTUS [Concomitant]
     Indication: TYPE 2 DIABETES MELLITUS
     Dosage: 15 UNK, DAILY
     Dates: start: 20030315
  9. CYMBALTA [Concomitant]
     Indication: PAIN
     Dosage: 60 MG, DAILY
     Route: 048
     Dates: start: 20090313
  10. ZONEGRAN [Concomitant]
     Indication: CONVULSION
     Dosage: 200 MG, DAILY
     Route: 048
     Dates: start: 20080119
  11. ZONEGRAN [Concomitant]
     Indication: MIGRAINE
  12. ZYRTEC [Concomitant]
     Indication: SEASONAL ALLERGY
     Dosage: 10 MG, DAILY
     Route: 048
  13. LYRICA [Concomitant]
     Indication: DIABETIC NEUROPATHY
     Dosage: 200 MG, DAILY
     Route: 048
     Dates: start: 20080315
  14. INTERFERON BETA-1B [Suspect]
     Indication: MULTIPLE SCLEROSIS
     Dosage: 25 MG, QOD
     Route: 058
     Dates: start: 20090301
  15. DARVOCET-N 50 [Concomitant]
  16. AMITRIPTYLINE [Concomitant]
     Indication: INSOMNIA
     Dosage: 50 MG, DAILY
     Route: 048
     Dates: start: 20080424

REACTIONS (1)
  - MYOCARDIAL INFARCTION [None]
